FAERS Safety Report 7201192-1 (Version None)
Quarter: 2010Q4

REPORT INFORMATION
  Report Type: 
  Country: None (occurrence: None)
  Receive Date: 20101215
  Receipt Date: 20101130
  Transmission Date: 20110411
  Serious: Yes (Hospitalization)
  Sender: FDA-Public Use
  Company Number: FKO201000542

PATIENT
  Age: 46 Year
  Sex: Female

DRUGS (3)
  1. FLUOROURACIL [Suspect]
     Indication: COLON CANCER
     Dates: start: 20101117, end: 20101117
  2. ELOXATIN (OXALIPLATIN) (OXALIPLATIN) [Suspect]
     Indication: COLON CANCER
     Dates: start: 20101117, end: 20101117
  3. LEUCOVORIN (CALCIUM FOLINATE) (CALCIUM FOLINATE) [Concomitant]

REACTIONS (5)
  - DEVICE DEPLOYMENT ISSUE [None]
  - DYSPNOEA [None]
  - INCORRECT ROUTE OF DRUG ADMINISTRATION [None]
  - LUNG INFILTRATION [None]
  - PLEURAL EFFUSION [None]
